FAERS Safety Report 17812479 (Version 2)
Quarter: 2020Q2

REPORT INFORMATION
  Report Type: Report from Study
  Country: GB (occurrence: GB)
  Receive Date: 20200521
  Receipt Date: 20200527
  Transmission Date: 20200714
  Serious: Yes (Hospitalization, Other)
  Sender: FDA-Public Use
  Company Number: GB-GLAXOSMITHKLINE-GB2020EME061259

PATIENT
  Sex: Female

DRUGS (1)
  1. MEPOLIZUMAB [Suspect]
     Active Substance: MEPOLIZUMAB
     Indication: ASTHMA
     Dosage: 100 MG, Z,(MONTHLY)
     Route: 042

REACTIONS (14)
  - Rash pruritic [Unknown]
  - Back pain [Unknown]
  - Feeling abnormal [Unknown]
  - Dyspnoea [Unknown]
  - Rash [Unknown]
  - Pyrexia [Unknown]
  - Fibromyalgia [Unknown]
  - Oropharyngeal pain [Unknown]
  - Feeling cold [Unknown]
  - Tonsillitis [Unknown]
  - Headache [Unknown]
  - Sepsis [Unknown]
  - Ear pain [Unknown]
  - Psoriasis [Unknown]
